FAERS Safety Report 6233654-8 (Version None)
Quarter: 2009Q2

REPORT INFORMATION
  Report Type: 
  Country: None (occurrence: None)
  Receive Date: 20090617
  Receipt Date: 20090611
  Transmission Date: 20091009
  Serious: Yes (Hospitalization, Other)
  Sender: FDA-Public Use
  Company Number: DE-AMGEN-QUU349516

PATIENT
  Sex: Female
  Weight: 64 kg

DRUGS (3)
  1. ARANESP [Suspect]
     Indication: RENAL FAILURE CHRONIC
     Dates: start: 20090201, end: 20090430
  2. ARANESP [Suspect]
     Indication: RENAL TRANSPLANT
  3. IMMUNOSUPPRESSANTS [Concomitant]

REACTIONS (2)
  - HYPERTENSION [None]
  - LABILE BLOOD PRESSURE [None]
